FAERS Safety Report 8230270-3 (Version None)
Quarter: 2012Q1

REPORT INFORMATION
  Report Type: 
  Country: None (occurrence: None)
  Receive Date: 20120321
  Receipt Date: 20120321
  Transmission Date: 20120608
  Serious: Yes (Death)
  Sender: FDA-Public Use
  Company Number: None

PATIENT
  Sex: Male
  Weight: 98.8842 kg

DRUGS (1)
  1. VICTOZA [Suspect]
     Indication: TYPE 2 DIABETES MELLITUS
     Dosage: 1.8 MG DAILY 057 SUBCUTANEOUSLY
     Route: 058
     Dates: start: 20100601, end: 20110201

REACTIONS (12)
  - DIARRHOEA [None]
  - PYREXIA [None]
  - NEOPLASM MALIGNANT [None]
  - WEIGHT DECREASED [None]
  - EATING DISORDER [None]
  - PANCREATIC CARCINOMA METASTATIC [None]
  - CONVULSION [None]
  - NAUSEA [None]
  - HEPATIC NEOPLASM MALIGNANT [None]
  - BLOOD GLUCOSE INCREASED [None]
  - MUSCULOSKELETAL DISORDER [None]
  - NERVOUS SYSTEM DISORDER [None]
